FAERS Safety Report 24464862 (Version 1)
Quarter: 2024Q4

REPORT INFORMATION
  Report Type: Report from Study
  Country: US (occurrence: US)
  Receive Date: 20241018
  Receipt Date: 20241018
  Transmission Date: 20250115
  Serious: No
  Sender: ROCHE
  Company Number: US-ROCHE-3512969

PATIENT
  Age: 55 Year
  Sex: Male

DRUGS (2)
  1. XOLAIR [Suspect]
     Active Substance: OMALIZUMAB
     Indication: Urticaria
     Dosage: 150 MG/ML, ANTICIPATED DATE OF TREATMENT: 16/MAR/2024, LAST INJECTION DATE : 16/FEB/2024
     Route: 058
     Dates: start: 20240216
  2. XOLAIR [Suspect]
     Active Substance: OMALIZUMAB

REACTIONS (1)
  - Pollakiuria [Unknown]
